FAERS Safety Report 6103692-4 (Version None)
Quarter: 2009Q1

REPORT INFORMATION
  Report Type: 
  Country: None (occurrence: None)
  Receive Date: 20090305
  Receipt Date: 20090226
  Transmission Date: 20090719
  Serious: Yes (Death)
  Sender: FDA-Public Use
  Company Number: PK-AVENTIS-200911878GDDC

PATIENT
  Age: 40 Year
  Sex: Male
  Weight: 60 kg

DRUGS (3)
  1. LANTUS [Suspect]
     Indication: TYPE 2 DIABETES MELLITUS
     Route: 058
     Dates: start: 20070705
  2. ZESTRIL [Concomitant]
     Indication: HYPERTENSION
     Route: 048
     Dates: start: 20070705
  3. LOWPLAT [Concomitant]
     Route: 048
     Dates: start: 20070705

REACTIONS (1)
  - DEATH [None]
